FAERS Safety Report 5757728-0 (Version None)
Quarter: 2008Q2

REPORT INFORMATION
  Report Type: 
  Country: None (occurrence: None)
  Receive Date: 20080529
  Receipt Date: 20080521
  Transmission Date: 20081010
  Serious: Yes (Other)
  Sender: FDA-Public Use
  Company Number: 2006SP000084

PATIENT
  Age: 46 Year
  Sex: Female

DRUGS (2)
  1. INTRON A [Suspect]
     Indication: HEPATITIS C
     Dosage: 6 MIU;TIW;IM
     Route: 030
     Dates: start: 20040601, end: 20040601
  2. REBETOL [Suspect]
     Indication: HEPATITIS C
     Dosage: 400 MG;QD;PO
     Route: 048
     Dates: start: 20040601, end: 20050601

REACTIONS (14)
  - ANTIBODY TEST POSITIVE [None]
  - BACK PAIN [None]
  - BLINDNESS UNILATERAL [None]
  - CHEST PAIN [None]
  - HYPERREFLEXIA [None]
  - HYPOAESTHESIA [None]
  - MULTIPLE SCLEROSIS [None]
  - MUSCULAR WEAKNESS [None]
  - MYELITIS [None]
  - NUCLEAR MAGNETIC RESONANCE IMAGING ABNORMAL [None]
  - OPTIC ISCHAEMIC NEUROPATHY [None]
  - OPTIC NEURITIS RETROBULBAR [None]
  - VISION BLURRED [None]
  - VISUAL ACUITY REDUCED [None]
